FAERS Safety Report 4928705-4 (Version None)
Quarter: 2006Q1

REPORT INFORMATION
  Report Type: 
  Country: None (occurrence: None)
  Receive Date: 20060301
  Receipt Date: 20041117
  Transmission Date: 20060701
  Serious: Yes (Hospitalization)
  Sender: FDA-Public Use
  Company Number: KP-2004-BP-12006RK

PATIENT
  Sex: Female
  Weight: 50 kg

DRUGS (5)
  1. MICARDIS [Suspect]
     Indication: HYPERTENSION
     Route: 048
     Dates: start: 20041026, end: 20041115
  2. OLDECA (BARNIDIPINE) [Concomitant]
     Indication: HYPERTENSION
     Route: 048
     Dates: start: 20040916
  3. DILATREND [Concomitant]
     Indication: HYPERTENSION
     Route: 048
     Dates: start: 20041008
  4. MINOSIDIL (MINOXIDIL) [Concomitant]
     Indication: HYPERTENSION
     Route: 048
     Dates: start: 20041019
  5. LASIX [Concomitant]
     Indication: HYPERTENSION
     Route: 048
     Dates: start: 20041026, end: 20041108

REACTIONS (3)
  - HAEMODIALYSIS [None]
  - PERITONEAL DIALYSIS [None]
  - RENAL FAILURE CHRONIC [None]
